FAERS Safety Report 26095197 (Version 2)
Quarter: 2025Q4

REPORT INFORMATION
  Report Type: Spontaneous
  Country: US (occurrence: US)
  Receive Date: 20251127
  Receipt Date: 20251211
  Transmission Date: 20260119
  Serious: Yes (Hospitalization)
  Sender: TEVA
  Company Number: US-TEVA-VS-3395849

PATIENT

DRUGS (1)
  1. TREPROSTINIL [Suspect]
     Active Substance: TREPROSTINIL
     Indication: Pulmonary hypertension
     Dosage: RECEIVED INHALED TREPROSTINIL THROUGH BOTH ENDOTRACHEAL AND TRACHEOSTOMY TUBES
     Route: 055

REACTIONS (1)
  - Oxygen saturation [Unknown]
